FAERS Safety Report 8502687-0 (Version None)
Quarter: 2012Q3

REPORT INFORMATION
  Report Type: 
  Country: None (occurrence: None)
  Receive Date: 20120702
  Receipt Date: 20120614
  Transmission Date: 20120928
  Serious: Yes (Death, Life-Threatening, Hospitalization, Other)
  Sender: FDA-Public Use
  Company Number: 2012P1039816

PATIENT
  Age: 77 Year
  Sex: Male

DRUGS (10)
  1. FLUINDIONE [Concomitant]
  2. FERROUS SULFATE TAB [Concomitant]
  3. METHYLPREDNISOLONE SODIUM SUCCINATE [Suspect]
     Indication: PREMEDICATION
     Dosage: 80 MG;IV
     Route: 042
     Dates: start: 20101116, end: 20101116
  4. CANCER CHEMOTHERAPY [Concomitant]
  5. FOLIC ACID [Concomitant]
  6. SOTALOL HYDROCHLORIDE [Concomitant]
  7. CAPTOPRIL AND HYDROCHLOROTHIAZIDE [Concomitant]
  8. DEXCHLORPHENIRAMINE MALEATE [Concomitant]
  9. GRANISETRON [Suspect]
     Indication: PREMEDICATION
     Dosage: 3 MG;IV
     Route: 042
     Dates: start: 20101116, end: 20101116
  10. RANITIDINE HCL [Suspect]
     Indication: PREMEDICATION
     Dosage: 50 MG;IV
     Route: 042
     Dates: start: 20101116, end: 20101116

REACTIONS (6)
  - ANAPHYLACTIC SHOCK [None]
  - NEOPLASM PROGRESSION [None]
  - CONVULSION [None]
  - COLON CANCER METASTATIC [None]
  - CARDIO-RESPIRATORY ARREST [None]
  - ATRIAL FIBRILLATION [None]
